APPROVED DRUG PRODUCT: CIMETIDINE
Active Ingredient: CIMETIDINE
Strength: 800MG
Dosage Form/Route: TABLET;ORAL
Application: A074890 | Product #004
Applicant: HIKMA PHARMACEUTICALS USA INC
Approved: Dec 18, 1998 | RLD: No | RS: No | Type: DISCN